FAERS Safety Report 17280144 (Version 7)
Quarter: 2020Q2

REPORT INFORMATION
  Report Type: Report from Study
  Country: KR (occurrence: KR)
  Receive Date: 20200117
  Receipt Date: 20200501
  Transmission Date: 20200713
  Serious: Yes (Hospitalization)
  Sender: FDA-Public Use
  Company Number: KR-ROCHE-2524393

PATIENT
  Age: 57 Year
  Sex: Female
  Weight: 68.8 kg

DRUGS (22)
  1. PENIRAMIN [Concomitant]
     Route: 042
     Dates: start: 20200113, end: 20200113
  2. MACPERAN [Concomitant]
     Active Substance: METOCLOPRAMIDE HYDROCHLORIDE
     Route: 042
     Dates: start: 20200116, end: 20200116
  3. URSA [Concomitant]
     Active Substance: URSODIOL
     Indication: ALANINE AMINOTRANSFERASE INCREASED
     Route: 048
     Dates: start: 20191219
  4. URSA [Concomitant]
     Active Substance: URSODIOL
     Indication: ASPARTATE AMINOTRANSFERASE INCREASED
  5. HARNAL [Concomitant]
     Active Substance: TAMSULOSIN HYDROCHLORIDE
     Route: 048
     Dates: start: 20200108
  6. BROPIUM [Concomitant]
     Route: 042
     Dates: start: 20200114, end: 20200114
  7. TYLENOL [Concomitant]
     Active Substance: ACETAMINOPHEN
     Indication: URINARY TRACT INFECTION
     Route: 048
     Dates: start: 20200202, end: 20200203
  8. TAGAMET [Concomitant]
     Active Substance: CIMETIDINE
     Route: 042
     Dates: start: 20200205, end: 20200205
  9. TAZOPERAN [Concomitant]
     Route: 042
     Dates: start: 20200113, end: 20200117
  10. DUPHALAC EASY [Concomitant]
     Active Substance: LACTULOSE
     Indication: CONSTIPATION
     Route: 048
     Dates: start: 20200115
  11. MACPERAN [Concomitant]
     Active Substance: METOCLOPRAMIDE HYDROCHLORIDE
     Route: 042
     Dates: start: 20200202
  12. K-CONTIN [Concomitant]
     Indication: HYPOKALAEMIA
     Route: 048
     Dates: start: 20200130, end: 20200131
  13. GLYCERINE [Concomitant]
     Active Substance: GLYCERIN
     Indication: CONSTIPATION
     Route: 054
     Dates: start: 20200201, end: 20200201
  14. DEXAMETHASONE. [Concomitant]
     Active Substance: DEXAMETHASONE
     Route: 042
     Dates: start: 20200205, end: 20200205
  15. ATEZOLIZUMAB. [Suspect]
     Active Substance: ATEZOLIZUMAB
     Indication: TRANSITIONAL CELL CARCINOMA
     Dosage: DOSE OF MOST RECENT DOSE ADMINISTERED IS 840 MG PRIOR TO AE ONSET ON 30/DEC/2019 AND 17/JAN/2020
     Route: 042
     Dates: start: 20191230
  16. NORZYME [Concomitant]
     Indication: DYSPEPSIA
     Route: 048
     Dates: start: 20200116
  17. MEROPEN [MEROPENEM] [Concomitant]
     Active Substance: MEROPENEM
     Indication: URINARY TRACT INFECTION
     Route: 042
     Dates: start: 20200202
  18. DENOGAN [Concomitant]
     Active Substance: PROPACETAMOL HYDROCHLORIDE
     Indication: URINARY TRACT INFECTION
     Route: 042
     Dates: start: 20200204
  19. GASOCOL [Concomitant]
     Route: 042
     Dates: start: 20200114, end: 20200114
  20. FURTMAN [Concomitant]
  21. TOCILIZUMAB. [Suspect]
     Active Substance: TOCILIZUMAB
     Indication: TRANSITIONAL CELL CARCINOMA
     Dosage: DOSE OF MOST RECENT DOSE ADMINISTERED IS 552 MG PRIOR TO AE ONSET ON 30/DEC/2019.
     Route: 042
  22. LASIX [Concomitant]
     Active Substance: FUROSEMIDE
     Indication: URINARY TRACT INFECTION
     Route: 042
     Dates: start: 20200203, end: 20200203

REACTIONS (1)
  - Ureteritis [Recovering/Resolving]

NARRATIVE: CASE EVENT DATE: 20200113
